FAERS Safety Report 19182992 (Version 2)
Quarter: 2021Q2

REPORT INFORMATION
  Report Type: Spontaneous
  Country: US (occurrence: US)
  Receive Date: 20210426
  Receipt Date: 20210507
  Transmission Date: 20210717
  Serious: No
  Sender: FDA-Public Use
  Company Number: US-AMGEN INC.-USASP2021061362

PATIENT
  Age: 26 Year
  Sex: Female

DRUGS (8)
  1. AIMOVIG [Suspect]
     Active Substance: ERENUMAB-AOOE
     Indication: MIGRAINE
     Dosage: 70 MILLIGRAM, QMO
     Route: 065
     Dates: start: 20210304, end: 2021
  2. SUMATRIPTAN. [Concomitant]
     Active Substance: SUMATRIPTAN
     Dosage: 100 MILLIGRAM, AS NECESSARY
     Route: 065
  3. TROKENDI XR [Concomitant]
     Active Substance: TOPIRAMATE
     Dosage: UNK
     Route: 065
  4. ZOFRAN [Concomitant]
     Active Substance: ONDANSETRON HYDROCHLORIDE
     Indication: NAUSEA
     Dosage: 8 MILLIGRAM, AS NECESSARY
     Route: 048
  5. EMGALITY [Concomitant]
     Active Substance: GALCANEZUMAB-GNLM
     Dosage: 120 MILLIGRAM (LOADING)
     Route: 065
     Dates: start: 20210304, end: 2021
  6. IMITREX [Suspect]
     Active Substance: SUMATRIPTAN SUCCINATE
     Indication: PRODUCT USED FOR UNKNOWN INDICATION
     Dosage: UNK
     Route: 065
  7. ALEVE [Concomitant]
     Active Substance: NAPROXEN SODIUM
     Dosage: UNK (TWO)
     Route: 065
  8. REYVOW [Concomitant]
     Active Substance: LASMIDITAN
     Indication: MIGRAINE
     Dosage: 100 MILLIGRAM (100?200 MILLIGRAM, AS A SINGLE DOSE)
     Route: 065

REACTIONS (5)
  - Drug ineffective [Unknown]
  - Injection site pain [Recovering/Resolving]
  - Poor quality sleep [Not Recovered/Not Resolved]
  - Hormone level abnormal [Unknown]
  - Initial insomnia [Not Recovered/Not Resolved]

NARRATIVE: CASE EVENT DATE: 20210304
